FAERS Safety Report 6821794-1 (Version None)
Quarter: 2010Q3

REPORT INFORMATION
  Report Type: 
  Country: None (occurrence: None)
  Receive Date: 20100708
  Receipt Date: 20100303
  Transmission Date: 20110219
  Serious: Yes (Other)
  Sender: FDA-Public Use
  Company Number: US-ASTRAZENECA-2009SE14787

PATIENT
  Age: 47 Year
  Sex: Female

DRUGS (10)
  1. SEROQUEL [Suspect]
     Dosage: 200 MG , TAKE TWO-THREE AT BEDTIME
     Route: 048
     Dates: start: 20030121
  2. GEODON [Concomitant]
     Route: 048
     Dates: start: 20030107
  3. ABILIFY [Concomitant]
     Route: 048
     Dates: start: 20030121
  4. WELLBUTRIN [Concomitant]
     Dates: start: 20070220
  5. CLONAZEPAM [Concomitant]
     Dosage: TAKE 1.5 TABLET BEDTIME
     Dates: start: 20070220
  6. RISPERDAL [Concomitant]
     Dates: start: 20070220
  7. GABAPENTIN [Concomitant]
     Dosage: 600 MG TAKE 2 TABLETS 3 TIMES A DAY
     Dates: start: 20070220
  8. METHYLPREDNISOLONE [Concomitant]
     Dosage: 4 MG TAKE AS DIRECTED
     Dates: start: 20070220
  9. LEVOTHYROXINE SODIUM [Concomitant]
     Dates: start: 20070220
  10. ESTRADIOL [Concomitant]
     Dates: start: 20070220

REACTIONS (4)
  - DIABETES MELLITUS [None]
  - DIABETIC NEPHROPATHY [None]
  - DIABETIC NEUROPATHY [None]
  - RENAL FAILURE [None]
